FAERS Safety Report 5527884-8 (Version None)
Quarter: 2007Q4

REPORT INFORMATION
  Report Type: 
  Country: None (occurrence: None)
  Receive Date: 20071128
  Receipt Date: 20071116
  Transmission Date: 20080405
  Serious: Yes (Other)
  Sender: FDA-Public Use
  Company Number: PHEH2007US15020

PATIENT
  Age: 69 Year
  Sex: Female

DRUGS (21)
  1. ZOMETA [Suspect]
     Dosage: EVERY THREE MONTHS
  2. REVLIMID [Suspect]
     Indication: MULTIPLE MYELOMA
     Dosage: 5 MG, 5QD
     Dates: start: 20060906
  3. REVLIMID [Suspect]
     Dosage: 5 MG THREE IN ONE DAY
     Dates: start: 20061109
  4. OXYCODONE HCL [Concomitant]
     Dosage: UNK, PRN
  5. NEURONTIN [Concomitant]
     Indication: NEUROPATHY PERIPHERAL
     Dosage: 100 MG, UNK
  6. NEURONTIN [Concomitant]
     Dosage: 200 MG, QD
  7. LIPITOR [Concomitant]
     Indication: LIPIDS INCREASED
     Dosage: 10 MG, QD
  8. VITAMIN CAP [Concomitant]
  9. FISH OIL [Concomitant]
     Dosage: 1 G, UNK
  10. PLAVIX [Concomitant]
     Indication: TRANSIENT ISCHAEMIC ATTACK
     Dosage: 75 MG, QD
  11. POTASSION [Concomitant]
     Dosage: 10 MEQ, UNK
  12. ASCORBIC ACID [Concomitant]
  13. DOCUSATE [Concomitant]
  14. HYDROCHLOROTHIAZIDE [Concomitant]
     Indication: HYPERTENSION
     Dosage: 25 MG, QD
  15. AMITRIPTLINE HCL [Concomitant]
     Dosage: 10 MG, UNK
  16. DEXAMETHASONE [Concomitant]
     Dosage: 20 MG, UNK
  17. ELAVIL [Concomitant]
     Indication: NEUROPATHY PERIPHERAL
     Dosage: 10 MG, QD
  18. POTASSIUM CHLORIDE [Concomitant]
     Indication: HYPERTENSION
     Dosage: 10 MEQ, UNK
  19. PROPOXYPHENE NAPSYLATE W/ ACETAMINOPHEN [Concomitant]
  20. ASPIRIN [Concomitant]
  21. MIRALAX [Concomitant]
     Indication: CONSTIPATION

REACTIONS (7)
  - ANAEMIA [None]
  - ASTHENIA [None]
  - CONSTIPATION [None]
  - DRUG INTERACTION [None]
  - FATIGUE [None]
  - NEUTROPENIA [None]
  - WHITE BLOOD CELL COUNT DECREASED [None]
